FAERS Safety Report 4876100-9 (Version None)
Quarter: 2006Q1

REPORT INFORMATION
  Report Type: 
  Country: None (occurrence: None)
  Receive Date: 20060106
  Receipt Date: 20060106
  Transmission Date: 20060701
  Serious: Yes (Life-Threatening, Hospitalization)
  Sender: FDA-Public Use
  Company Number: None

PATIENT
  Age: 58 Year
  Sex: Female
  Weight: 74.8435 kg

DRUGS (2)
  1. BIAXIN XL [Suspect]
     Indication: BRONCHITIS
     Dosage: 500 MGS  2/DAY PO
     Route: 048
     Dates: start: 20031225, end: 20040110
  2. BIAXIN XL [Suspect]
     Indication: BRONCHITIS
     Dosage: 500 MGS  2/DAY PO
     Route: 048
     Dates: start: 20040123, end: 20040130

REACTIONS (1)
  - CARDIAC FIBRILLATION [None]
